FAERS Safety Report 5787822-X (Version None)
Quarter: 2008Q2

REPORT INFORMATION
  Report Type: 
  Country: None (occurrence: None)
  Receive Date: 20080625
  Receipt Date: 20080625
  Transmission Date: 20081010
  Serious: Yes (Hospitalization)
  Sender: FDA-Public Use
  Company Number: PHHO2005FR14403

PATIENT
  Sex: Female
  Weight: 62 kg

DRUGS (3)
  1. ZOLEDRONIC ACID [Suspect]
     Indication: OSTEOPENIA
     Dosage: 5MG AT RANDOMISATION AND MONTH 12
     Route: 042
     Dates: start: 20041118
  2. VITAMIN D [Concomitant]
     Dosage: 500-1200 MG, QD
  3. CALCIUM [Concomitant]
     Dosage: 400-800 IU, QD

REACTIONS (1)
  - CHEST PAIN [None]
